FAERS Safety Report 16554539 (Version 1)
Quarter: 2019Q3

REPORT INFORMATION
  Report Type: Spontaneous
  Country: GB (occurrence: GB)
  Receive Date: 20190710
  Receipt Date: 20190710
  Transmission Date: 20191004
  Serious: Yes (Other)
  Sender: FDA-Public Use
  Company Number: GB-TEVA-2019-GB-1074091

PATIENT
  Age: 71 Year
  Sex: Female
  Weight: 74 kg

DRUGS (9)
  1. CLENIL MODULITE [Concomitant]
     Active Substance: BECLOMETHASONE DIPROPIONATE
     Route: 055
     Dates: start: 20180417
  2. BENDROFLUMETHIAZIDE [Concomitant]
     Active Substance: BENDROFLUMETHIAZIDE
     Dosage: MORNING
     Dates: start: 20180417
  3. TERBUTALINE [Concomitant]
     Active Substance: TERBUTALINE
     Route: 055
     Dates: start: 20180417
  4. ALOGLIPTIN. [Concomitant]
     Active Substance: ALOGLIPTIN
     Dates: start: 20180417
  5. DERMOL [Concomitant]
     Active Substance: BENZALKONIUM CHLORIDE\CHLORHEXIDINE HYDROCHLORIDE\ISOPROPYL MYRISTATE\PARAFFIN
     Dosage: USE FOR WASHING AS A SOAP SUBSTITUTE
     Dates: start: 20180417
  6. TEVA UK SIMVASTATIN [Suspect]
     Active Substance: SIMVASTATIN
     Dosage: NIGHT
     Route: 065
     Dates: start: 20190417
  7. SIMVASTATIN. [Concomitant]
     Active Substance: SIMVASTATIN
  8. LIQUIFILM TEARS [Concomitant]
     Active Substance: POLYVINYL ALCOHOL
     Dosage: INSTIL 1-2 DROPS AS NEEDED
     Dates: start: 20180417
  9. METFORMIN [Concomitant]
     Active Substance: METFORMIN HYDROCHLORIDE
     Dates: start: 20180417

REACTIONS (4)
  - Sleep disorder [Unknown]
  - Arthralgia [Recovering/Resolving]
  - Condition aggravated [Unknown]
  - Product substitution issue [Unknown]

NARRATIVE: CASE EVENT DATE: 20190417
